FAERS Safety Report 14071695 (Version 1)
Quarter: 2017Q4

REPORT INFORMATION
  Report Type: Spontaneous
  Country: US (occurrence: US)
  Receive Date: 20171010
  Receipt Date: 20171010
  Transmission Date: 20180321
  Serious: No
  Sender: FDA-Public Use
  Company Number: None

PATIENT
  Sex: Female
  Weight: 18.9 kg

DRUGS (1)
  1. MONTELUKAST [Suspect]
     Active Substance: MONTELUKAST SODIUM
     Indication: ASTHMA
     Route: 048

REACTIONS (8)
  - Middle insomnia [None]
  - Aggression [None]
  - Sleep disorder [None]
  - Depression [None]
  - Intentional self-injury [None]
  - Anger [None]
  - Sleep terror [None]
  - Crying [None]
